FAERS Safety Report 5964165-2 (Version None)
Quarter: 2008Q4

REPORT INFORMATION
  Report Type: 
  Country: None (occurrence: None)
  Receive Date: 20081124
  Receipt Date: 20081117
  Transmission Date: 20090506
  Serious: Yes (Death, Life-Threatening, Hospitalization, Other)
  Sender: FDA-Public Use
  Company Number: GR-AMGEN-UK313971

PATIENT
  Sex: Male
  Weight: 145.5 kg

DRUGS (11)
  1. ARANESP [Suspect]
     Indication: DIALYSIS
     Route: 042
  2. MIMPARA [Suspect]
     Indication: HYPERPARATHYROIDISM SECONDARY
     Route: 048
     Dates: start: 20080901
  3. VENOFER [Concomitant]
  4. AMIODARONE HCL [Concomitant]
  5. LIPITOR [Concomitant]
  6. ZYLORIC [Concomitant]
  7. CALCIUM [Concomitant]
  8. MINITRAN [Concomitant]
  9. DIGOXIN [Concomitant]
  10. FOSRENOL [Concomitant]
  11. ONE-ALPHA [Concomitant]

REACTIONS (4)
  - CHILLS [None]
  - DIARRHOEA [None]
  - PYREXIA [None]
  - SEPSIS [None]
